FAERS Safety Report 4280751-2 (Version None)
Quarter: 2004Q1

REPORT INFORMATION
  Report Type: 
  Country: None (occurrence: None)
  Receive Date: 20040127
  Receipt Date: 20040115
  Transmission Date: 20041129
  Serious: Yes (Other)
  Sender: FDA-Public Use
  Company Number: 2004194525GB

PATIENT
  Age: 52 Year
  Sex: Female

DRUGS (3)
  1. DELTA-CORTEF [Suspect]
     Indication: INFLAMMATION
     Dosage: 5 UNK; SEE IMAGE
     Dates: start: 20021001
  2. DELTA-CORTEF [Suspect]
     Indication: INFLAMMATION
     Dosage: 5 UNK; SEE IMAGE
     Dates: start: 20030301
  3. THYROXINE (LEVOTHYROXINE SODUIM) [Concomitant]

REACTIONS (5)
  - ANGIONEUROTIC OEDEMA [None]
  - BLOOD THYROID STIMULATING HORMONE DECREASED [None]
  - LIVER FUNCTION TEST ABNORMAL [None]
  - THYROXINE FREE INCREASED [None]
  - URTICARIA [None]
